FAERS Safety Report 7951365-5 (Version None)
Quarter: 2011Q4

REPORT INFORMATION
  Report Type: 
  Country: None (occurrence: None)
  Receive Date: 20111201
  Receipt Date: 20111129
  Transmission Date: 20120403
  Serious: No
  Sender: FDA-Public Use
  Company Number: US-BAYER-2011-115067

PATIENT
  Sex: Female

DRUGS (2)
  1. YASMIN [Suspect]
     Indication: POLYCYSTIC OVARIES
  2. SAFYRAL [Suspect]
     Indication: POLYCYSTIC OVARIES

REACTIONS (4)
  - WEIGHT INCREASED [None]
  - MUSCLE SPASMS [None]
  - DISCOMFORT [None]
  - ACNE [None]
